FAERS Safety Report 8301017-7 (Version None)
Quarter: 2012Q2

REPORT INFORMATION
  Report Type: 
  Country: None (occurrence: None)
  Receive Date: 20120420
  Receipt Date: 20120322
  Transmission Date: 20120825
  Serious: Yes (Other)
  Sender: FDA-Public Use
  Company Number: JP-VERTEX PHARMACEUTICALS INC.-AE-2012-002368

PATIENT
  Age: 45 Year
  Sex: Male

DRUGS (7)
  1. REBETOL [Concomitant]
     Route: 048
     Dates: start: 20120210
  2. PEGINTERFERON [Concomitant]
     Indication: HEPATITIS C
     Route: 058
     Dates: start: 20120120, end: 20120127
  3. TELAVIC (TELAPREVIR) [Suspect]
     Indication: HEPATITIS C
     Route: 048
     Dates: start: 20120120
  4. PEGINTERFERON [Concomitant]
     Route: 058
     Dates: start: 20120202, end: 20120202
  5. PEGINTERFERON [Concomitant]
     Route: 058
     Dates: start: 20120209, end: 20120209
  6. REBETOL [Concomitant]
     Indication: HEPATITIS C
     Route: 048
     Dates: start: 20120120, end: 20120209
  7. PEGINTERFERON [Concomitant]
     Route: 058
     Dates: start: 20120217

REACTIONS (6)
  - NEUTROPENIA [None]
  - BLOOD URIC ACID INCREASED [None]
  - DECREASED APPETITE [None]
  - HAEMOGLOBIN DECREASED [None]
  - PYREXIA [None]
  - RASH [None]
